FAERS Safety Report 11928270 (Version 14)
Quarter: 2020Q3

REPORT INFORMATION
  Report Type: Report from Study
  Country: JP (occurrence: JP)
  Receive Date: 20160119
  Receipt Date: 20200901
  Transmission Date: 20201102
  Serious: Yes (Hospitalization, Other)
  Sender: FDA-Public Use
  Company Number: JP-INCYTE CORPORATION-2015IN004952

PATIENT

DRUGS (10)
  1. LEVOFLOXACIN. [Suspect]
     Active Substance: LEVOFLOXACIN
     Indication: INFECTION
     Dosage: 400 MG, QD
     Route: 048
     Dates: start: 20150721, end: 20150728
  2. ZOMETA [Concomitant]
     Active Substance: ZOLEDRONIC ACID
     Indication: PRIMARY MYELOFIBROSIS
     Dosage: 4 MG, QMO
     Route: 041
     Dates: start: 20120329
  3. ROCEPHIN [Suspect]
     Active Substance: CEFTRIAXONE SODIUM
     Indication: BRONCHITIS
     Dosage: 1 G, QD
     Route: 065
     Dates: start: 20151105, end: 20151109
  4. ROCEPHIN [Suspect]
     Active Substance: CEFTRIAXONE SODIUM
     Indication: INFECTION
     Dosage: 1 G, QD
     Route: 065
     Dates: start: 20150721, end: 20150725
  5. ISOTONIC SODIUM CHLORIDE SOLUTION [Concomitant]
     Active Substance: SODIUM CHLORIDE
     Indication: PRODUCT USED FOR UNKNOWN INDICATION
     Dosage: 100 ML, QMO
     Route: 065
  6. JAKAVI [Suspect]
     Active Substance: RUXOLITINIB
     Indication: PRIMARY MYELOFIBROSIS
     Dosage: 5 MG, BID
     Route: 048
     Dates: start: 20150228
  7. LEVOFLOXACIN. [Suspect]
     Active Substance: LEVOFLOXACIN
     Indication: BRONCHITIS
     Dosage: 400 MG, QD
     Route: 048
     Dates: start: 20151105, end: 20151112
  8. FOSFOMYCIN [Suspect]
     Active Substance: FOSFOMYCIN
     Indication: INFECTION
     Dosage: 1 G, QD
     Route: 065
     Dates: start: 20150721, end: 20150725
  9. FOSFOMYCIN [Suspect]
     Active Substance: FOSFOMYCIN
     Indication: BRONCHITIS
     Dosage: 1 G, QD
     Route: 065
     Dates: start: 20151105, end: 20151109
  10. PRIMOBOLAN [Concomitant]
     Active Substance: METHENOLONE
     Indication: PRIMARY MYELOFIBROSIS
     Dosage: 20 MG, UNK
     Route: 048
     Dates: start: 20100617

REACTIONS (33)
  - Neutrophil count decreased [Recovering/Resolving]
  - Erythroblast count increased [Recovering/Resolving]
  - Tracheitis [Recovering/Resolving]
  - Bile duct stone [Recovered/Resolved]
  - Hepatic function abnormal [Recovering/Resolving]
  - Bronchitis moraxella [Recovered/Resolved]
  - Pyrexia [Recovering/Resolving]
  - Anaemia [Unknown]
  - Nasopharyngitis [Unknown]
  - Hepatic function abnormal [Recovered/Resolved]
  - Iron deficiency anaemia [Recovering/Resolving]
  - White blood cell count decreased [Not Recovered/Not Resolved]
  - Lymphocyte morphology abnormal [Recovering/Resolving]
  - Hepatic function abnormal [Recovered/Resolved]
  - Atrial fibrillation [Recovered/Resolved]
  - Cholangitis acute [Unknown]
  - Splenomegaly [Not Recovered/Not Resolved]
  - Haemorrhage subcutaneous [Recovered/Resolved]
  - Herpes zoster [Recovered/Resolved]
  - Decreased appetite [Recovering/Resolving]
  - Oropharyngeal pain [Unknown]
  - Sputum discoloured [Unknown]
  - Primary myelofibrosis [Unknown]
  - Bronchitis [Recovered/Resolved]
  - Cough [Unknown]
  - Oral herpes [Recovering/Resolving]
  - Red blood cell count decreased [Not Recovered/Not Resolved]
  - Gastric polyps [Recovered/Resolved]
  - Hepatic function abnormal [Recovered/Resolved]
  - Differential white blood cell count abnormal [Recovering/Resolving]
  - Hepatic function abnormal [Recovered/Resolved]
  - Blood lactate dehydrogenase increased [Not Recovered/Not Resolved]
  - Rhinorrhoea [Unknown]

NARRATIVE: CASE EVENT DATE: 20150228
